FAERS Safety Report 5024943-3 (Version None)
Quarter: 2006Q2

REPORT INFORMATION
  Report Type: 
  Country: None (occurrence: None)
  Receive Date: 20060607
  Receipt Date: 20060524
  Transmission Date: 20061013
  Serious: Yes (Hospitalization)
  Sender: FDA-Public Use
  Company Number: 230001K06PHL

PATIENT
  Age: 26 Year
  Sex: 0

DRUGS (1)
  1. REBIF [Suspect]

REACTIONS (1)
  - OEDEMA [None]
